FAERS Safety Report 21007741 (Version 1)
Quarter: 2022Q2

REPORT INFORMATION
  Report Type: Spontaneous
  Country: US (occurrence: US)
  Receive Date: 20220627
  Receipt Date: 20220627
  Transmission Date: 20220720
  Serious: No
  Sender: FDA-Public Use
  Company Number: US-JNJFOC-20220633643

PATIENT
  Sex: Female
  Weight: 54.480 kg

DRUGS (1)
  1. REMICADE [Suspect]
     Active Substance: INFLIXIMAB
     Indication: Crohn^s disease
     Route: 041

REACTIONS (11)
  - Tooth injury [Unknown]
  - Eye pain [Unknown]
  - Arthralgia [Unknown]
  - Neuralgia [Unknown]
  - Amnesia [Unknown]
  - Intraocular pressure test [Unknown]
  - Visual impairment [Unknown]
  - Memory impairment [Unknown]
  - Feeling abnormal [Unknown]
  - Weight decreased [Unknown]
  - Infusion related reaction [Unknown]
